FAERS Safety Report 12571459 (Version 2)
Quarter: 2016Q3

REPORT INFORMATION
  Report Type: Report from Study
  Country: US (occurrence: US)
  Receive Date: 20160719
  Receipt Date: 20160721
  Transmission Date: 20161109
  Serious: Yes (Hospitalization)
  Sender: FDA-Public Use
  Company Number: US-SA-2016SA127972

PATIENT
  Age: 67 Year
  Sex: Female

DRUGS (7)
  1. SOLOSTAR [Concomitant]
     Active Substance: DEVICE
     Indication: TYPE 2 DIABETES MELLITUS
     Dosage: DOSE:70 UNIT(S)
     Dates: start: 201606
  2. TOUJEO [Suspect]
     Active Substance: INSULIN GLARGINE
     Indication: TYPE 2 DIABETES MELLITUS
     Dosage: DOSE:70 UNIT(S)
     Route: 065
     Dates: start: 201606
  3. HUMALOG [Concomitant]
     Active Substance: INSULIN LISPRO
     Dosage: FREQUENCY: MEAL TIME INSULIN
  4. NOVOLOG [Concomitant]
     Active Substance: INSULIN ASPART
     Dates: start: 201606
  5. LEVEMIR [Concomitant]
     Active Substance: INSULIN DETEMIR
     Dates: start: 201606
  6. LANTUS [Concomitant]
     Active Substance: INSULIN GLARGINE
     Indication: DIABETES MELLITUS
     Dosage: DOSE:70 UNIT(S)
     Route: 058
     Dates: start: 201607
  7. LANTUS [Concomitant]
     Active Substance: INSULIN GLARGINE
     Indication: DIABETES MELLITUS

REACTIONS (4)
  - Swelling [Unknown]
  - Dyspnoea [Unknown]
  - Weight increased [Unknown]
  - Cardiac failure congestive [Unknown]

NARRATIVE: CASE EVENT DATE: 20160703
